FAERS Safety Report 6671475-2 (Version None)
Quarter: 2010Q2

REPORT INFORMATION
  Report Type: 
  Country: None (occurrence: None)
  Receive Date: 20100407
  Receipt Date: 20100330
  Transmission Date: 20101027
  Serious: Yes (Life-Threatening, Hospitalization)
  Sender: FDA-Public Use
  Company Number: JP-MERCK-1004USA00141

PATIENT
  Age: 84 Year
  Sex: Male

DRUGS (6)
  1. JANUVIA [Suspect]
     Indication: HYPERGLYCAEMIA
     Route: 048
     Dates: start: 20100121
  2. ASPIRIN [Suspect]
     Indication: THROMBOSIS PROPHYLAXIS
     Route: 048
     Dates: start: 20081211
  3. PROTECADIN [Suspect]
     Route: 048
     Dates: start: 20081211
  4. ACTOS [Suspect]
     Indication: HYPERGLYCAEMIA
     Route: 048
     Dates: start: 20081211
  5. AMARYL [Suspect]
     Indication: HYPERGLYCAEMIA
     Route: 048
     Dates: start: 20081211
  6. LIVALO [Suspect]
     Indication: HYPERLIPIDAEMIA
     Route: 048
     Dates: start: 20081211

REACTIONS (1)
  - MYOCARDIAL INFARCTION [None]
